FAERS Safety Report 9315657 (Version 1)
Quarter: 2013Q2

REPORT INFORMATION
  Report Type: Spontaneous
  Country: CA (occurrence: CA)
  Receive Date: 20130529
  Receipt Date: 20130529
  Transmission Date: 20140414
  Serious: Yes (Other)
  Sender: FDA-Public Use
  Company Number: CHPA2013CA008964

PATIENT
  Age: 51 Year
  Sex: Female

DRUGS (2)
  1. BUCKLEY^S UNKNOWN [Suspect]
     Indication: BRONCHITIS
     Dosage: UNK, UNK
     Route: 048
     Dates: start: 1945
  2. BUCKLEY^S UNKNOWN [Suspect]
     Indication: INFLUENZA

REACTIONS (3)
  - Bronchitis [Unknown]
  - Therapeutic response unexpected [Unknown]
  - Off label use [Unknown]
